FAERS Safety Report 17489112 (Version 1)
Quarter: 2020Q1

REPORT INFORMATION
  Report Type: Report from Study
  Country: GB (occurrence: GB)
  Receive Date: 20200303
  Receipt Date: 20200303
  Transmission Date: 20200409
  Serious: Yes (Hospitalization)
  Sender: FDA-Public Use
  Company Number: GB-CELGENEUS-GBR-20200208268

PATIENT
  Age: 63 Year
  Sex: Male
  Weight: 85 kg

DRUGS (6)
  1. PREDNISOLONE. [Concomitant]
     Active Substance: PREDNISOLONE
     Indication: ABDOMINAL PAIN
     Dosage: 9 MG X 1 X 1 DAYS
     Route: 048
     Dates: start: 20200113, end: 20200130
  2. PREDNISOLONE. [Concomitant]
     Active Substance: PREDNISOLONE
     Dosage: 5 MG X 1 X 2 DAYS
     Route: 048
     Dates: start: 20200215
  3. PREDNISOLONE. [Concomitant]
     Active Substance: PREDNISOLONE
     Dosage: 5 MG X 1 X 1 DAYS
     Route: 048
     Dates: start: 20200211, end: 20200215
  4. OMEPRAZOLE. [Concomitant]
     Active Substance: OMEPRAZOLE
     Indication: ABDOMINAL PAIN
     Dosage: 20 MG X 1 X 1 DAYS
     Route: 048
     Dates: start: 2019
  5. PREDNISOLONE. [Concomitant]
     Active Substance: PREDNISOLONE
     Dosage: 7 MG X 1 X 1 DAYS
     Route: 048
     Dates: start: 20200130, end: 20200211
  6. FEDRATINIB [Suspect]
     Active Substance: FEDRATINIB
     Indication: MYELOFIBROSIS
     Dosage: 400 MG X 1 X 1 DAYS
     Route: 048
     Dates: start: 20200130

REACTIONS (1)
  - Neutropenic sepsis [Recovering/Resolving]

NARRATIVE: CASE EVENT DATE: 20200213
